FAERS Safety Report 25488803 (Version 1)
Quarter: 2025Q2

REPORT INFORMATION
  Report Type: Report from Study
  Country: JP (occurrence: JP)
  Receive Date: 20250627
  Receipt Date: 20250627
  Transmission Date: 20250716
  Serious: Yes (Death)
  Sender: SHIONOGI
  Company Number: JP-shionogi-202500006489

PATIENT
  Age: 81 Year
  Sex: Female
  Weight: 49 kg

DRUGS (13)
  1. CEFIDEROCOL [Suspect]
     Active Substance: CEFIDEROCOL
     Indication: Peritonitis
     Route: 041
     Dates: start: 20250110, end: 20250127
  2. CEFIDEROCOL [Suspect]
     Active Substance: CEFIDEROCOL
     Indication: Pneumonia
  3. AMIKACIN SULFATE [Concomitant]
     Active Substance: AMIKACIN SULFATE
     Indication: Peritonitis
     Route: 065
     Dates: start: 20241229, end: 20250107
  4. AMIKACIN SULFATE [Concomitant]
     Active Substance: AMIKACIN SULFATE
     Indication: Pneumonia
  5. CLINDAMYCIN [Concomitant]
     Active Substance: CLINDAMYCIN
     Indication: Peritonitis
     Route: 065
     Dates: start: 20250107, end: 20250110
  6. CLINDAMYCIN [Concomitant]
     Active Substance: CLINDAMYCIN
     Indication: Pneumonia
  7. ZERBAXA [Concomitant]
     Active Substance: CEFTOLOZANE SULFATE\TAZOBACTAM SODIUM
     Indication: Peritonitis
     Route: 065
     Dates: start: 20250107, end: 20250110
  8. ZERBAXA [Concomitant]
     Active Substance: CEFTOLOZANE SULFATE\TAZOBACTAM SODIUM
     Indication: Pneumonia
  9. PIPERACILLIN SODIUM\TAZOBACTAM SODIUM [Concomitant]
     Active Substance: PIPERACILLIN SODIUM\TAZOBACTAM SODIUM
     Indication: Peritonitis
     Route: 065
     Dates: start: 20250105, end: 20250107
  10. PIPERACILLIN SODIUM\TAZOBACTAM SODIUM [Concomitant]
     Active Substance: PIPERACILLIN SODIUM\TAZOBACTAM SODIUM
     Indication: Pneumonia
  11. GABEXATE MESYLATE [Concomitant]
     Active Substance: GABEXATE MESYLATE
     Indication: Product used for unknown indication
     Route: 065
     Dates: end: 20250118
  12. ANTITHROMBIN III HUMAN [Concomitant]
     Active Substance: ANTITHROMBIN III HUMAN
     Indication: Product used for unknown indication
     Route: 065
     Dates: start: 20250119, end: 20250120
  13. TOLVAPTAN [Concomitant]
     Active Substance: TOLVAPTAN
     Indication: Product used for unknown indication
     Route: 065
     Dates: start: 20250119, end: 20250127

REACTIONS (2)
  - Peritonitis [Fatal]
  - Pneumonia [Fatal]

NARRATIVE: CASE EVENT DATE: 20250127
